FAERS Safety Report 10155871 (Version 1)
Quarter: 2014Q2

REPORT INFORMATION
  Report Type: Spontaneous
  Country: GB (occurrence: GB)
  Receive Date: 20140506
  Receipt Date: 20140506
  Transmission Date: 20141212
  Serious: Yes (Life-Threatening, Hospitalization)
  Sender: FDA-Public Use
  Company Number: GB-WATSON-2014-08938

PATIENT
  Age: 71 Year
  Sex: Male

DRUGS (7)
  1. NAPROXEN [Suspect]
     Indication: BACK PAIN
     Dosage: 500 MG, TOTAL;2 TABLETS(250 MG) ORALLY STAT THEN 1 TABLET ORALLY THREE TIMES DAILY\WHEN NECESSARY.
     Route: 048
     Dates: start: 20140410, end: 20140410
  2. SOLPADOL [Concomitant]
     Indication: BACK PAIN
     Dosage: 1 - 2 CAPSULES FOUR TIMES DAILY\WHEN NECESSARY.
     Route: 048
     Dates: start: 20140410, end: 20140410
  3. ACCUPRIL [Concomitant]
     Indication: HYPERTENSION
     Dosage: 40 MG, DAILY
     Route: 048
  4. ADVICOR [Concomitant]
     Indication: HYPERCHOLESTEROLAEMIA
     Dosage: 1 DF, DAILY
     Route: 048
  5. AMITRIPTYLINE [Concomitant]
     Indication: PAIN
     Dosage: 10 MG, QHS
     Route: 048
  6. NASONEX [Concomitant]
     Indication: RHINITIS ALLERGIC
     Dosage: 4 DF, DAILY;50 MCG/SPRAY 2 SPRAYS EACH NOSTRIL ONCE DAILY.
     Route: 045
  7. OMEPRAZOLE [Concomitant]
     Indication: IRRITABLE BOWEL SYNDROME
     Dosage: 20 MG, DAILY
     Route: 048

REACTIONS (1)
  - Anaphylactic reaction [Recovering/Resolving]
